FAERS Safety Report 14571895 (Version 1)
Quarter: 2018Q1

REPORT INFORMATION
  Report Type: Spontaneous
  Country: DE (occurrence: DE)
  Receive Date: 20180226
  Receipt Date: 20180226
  Transmission Date: 20180509
  Serious: Yes (Hospitalization)
  Sender: FDA-Public Use
  Company Number: PHHY2017DE184771

PATIENT
  Age: 72 Year
  Sex: Male

DRUGS (10)
  1. RISPERIDONE. [Interacting]
     Active Substance: RISPERIDONE
     Dosage: 1 MG, UNK
     Route: 048
     Dates: start: 20170815, end: 20170816
  2. ASPIRIN. [Concomitant]
     Active Substance: ASPIRIN
     Indication: PRODUCT USED FOR UNKNOWN INDICATION
     Dosage: 100 MG, ONGOING SINCE MONTHS
     Route: 048
  3. VITAMIN B12 [Concomitant]
     Active Substance: CYANOCOBALAMIN
     Indication: PRODUCT USED FOR UNKNOWN INDICATION
     Dosage: 1000 UG, QD
     Route: 030
  4. TOREM [Concomitant]
     Active Substance: TORSEMIDE
     Indication: PRODUCT USED FOR UNKNOWN INDICATION
     Dosage: 5 MG, UNK
     Route: 048
  5. MELPERONE [Interacting]
     Active Substance: MELPERONE
     Indication: PRODUCT USED FOR UNKNOWN INDICATION
     Dosage: 75 MG, UNK
     Route: 048
     Dates: end: 20170817
  6. RISPERIDONE. [Suspect]
     Active Substance: RISPERIDONE
     Indication: DELIRIUM
     Dosage: 2 MG, UNK
     Route: 048
     Dates: end: 20170814
  7. HUMALOG [Concomitant]
     Active Substance: INSULIN LISPRO
     Indication: PRODUCT USED FOR UNKNOWN INDICATION
     Route: 065
     Dates: start: 20170809
  8. ASPIRIN. [Concomitant]
     Active Substance: ASPIRIN
     Dosage: EINNAHME SEIT MONATEN
     Route: 048
  9. HUMALOG [Concomitant]
     Active Substance: INSULIN LISPRO
     Dosage: NACH SCHEMA
  10. METFORMIN [Concomitant]
     Active Substance: METFORMIN HYDROCHLORIDE
     Indication: PRODUCT USED FOR UNKNOWN INDICATION
     Dosage: 1700 MG, UNK
     Route: 048

REACTIONS (3)
  - Pleurothotonus [Recovered/Resolved]
  - Drug interaction [Recovered/Resolved]
  - Haematoma [Unknown]

NARRATIVE: CASE EVENT DATE: 201708
